FAERS Safety Report 6038593-3 (Version None)
Quarter: 2009Q1

REPORT INFORMATION
  Report Type: 
  Country: None (occurrence: None)
  Receive Date: 20090115
  Receipt Date: 20090106
  Transmission Date: 20090719
  Serious: Yes (Hospitalization)
  Sender: FDA-Public Use
  Company Number: B0551208A

PATIENT
  Age: 56 Year
  Sex: Female
  Weight: 71 kg

DRUGS (2)
  1. LAPATINIB [Suspect]
     Dosage: 1000MG PER DAY
     Route: 048
     Dates: start: 20081001, end: 20081213
  2. VINORELBINE [Suspect]
     Dosage: 45MG CYCLIC
     Route: 042
     Dates: start: 20081203, end: 20081203

REACTIONS (2)
  - PYREXIA [None]
  - STOMATITIS [None]
